FAERS Safety Report 14267491 (Version 1)
Quarter: 2017Q4

REPORT INFORMATION
  Report Type: Spontaneous
  Country: US (occurrence: US)
  Receive Date: 20171209
  Receipt Date: 20171209
  Transmission Date: 20180321
  Serious: Yes (Disabling, Other)
  Sender: FDA-Public Use
  Company Number: None

PATIENT
  Age: 48 Year
  Sex: Female
  Weight: 63 kg

DRUGS (2)
  1. RISPERIDONE. [Suspect]
     Active Substance: RISPERIDONE
     Indication: MANIA
     Dosage: ?          QUANTITY:1 TABLET(S);?
     Route: 048
     Dates: start: 20160701, end: 20161120
  2. FISH OIL [Concomitant]
     Active Substance: FISH OIL

REACTIONS (6)
  - Insomnia [None]
  - Anxiety [None]
  - Obsessive thoughts [None]
  - Emotional disorder [None]
  - Feeling abnormal [None]
  - Akathisia [None]

NARRATIVE: CASE EVENT DATE: 20161007
